FAERS Safety Report 4705999-1 (Version None)
Quarter: 2005Q2

REPORT INFORMATION
  Report Type: 
  Country: None (occurrence: None)
  Receive Date: 20050629
  Receipt Date: 20050528
  Transmission Date: 20051028
  Serious: Yes (Hospitalization)
  Sender: FDA-Public Use
  Company Number: 05P-163-0301902-00

PATIENT
  Age: 67 Year
  Sex: Female
  Weight: 63.05 kg

DRUGS (3)
  1. HUMIRA [Suspect]
     Indication: RHEUMATOID ARTHRITIS
     Dosage: 40 MG, 1 IN 2 WK, SUBCUTANEOUS
     Route: 058
     Dates: start: 20050405, end: 20050523
  2. METOPROLOL TARTRATE [Concomitant]
  3. LANSOPRAZOLE [Concomitant]

REACTIONS (5)
  - ABDOMINAL PAIN LOWER [None]
  - ARTHRITIS [None]
  - GAIT DISTURBANCE [None]
  - INFECTION [None]
  - PYREXIA [None]
